APPROVED DRUG PRODUCT: CELLCEPT
Active Ingredient: MYCOPHENOLATE MOFETIL
Strength: 200MG/ML
Dosage Form/Route: FOR SUSPENSION;ORAL
Application: N050759 | Product #001 | TE Code: AB
Applicant: ROCHE PALO ALTO LLC
Approved: Oct 1, 1998 | RLD: Yes | RS: Yes | Type: RX